FAERS Safety Report 4680658-2 (Version None)
Quarter: 2005Q2

REPORT INFORMATION
  Report Type: 
  Country: None (occurrence: None)
  Receive Date: 20050531
  Receipt Date: 20050420
  Transmission Date: 20051028
  Serious: No
  Sender: FDA-Public Use
  Company Number: WAES 0504USA03684

PATIENT
  Age: 65 Year
  Sex: Male

DRUGS (6)
  1. ZETIA [Suspect]
     Indication: BLOOD CHOLESTEROL INCREASED
     Dosage: 10 MG/DAILY/PO
     Route: 048
     Dates: start: 20050201, end: 20050401
  2. LASIX [Concomitant]
  3. ZAROXOLYN [Concomitant]
  4. (THERAPY UNSPECIFIED) [Concomitant]
  5. INSULIN [Concomitant]
  6. INSULIN [Concomitant]

REACTIONS (2)
  - BALANCE DISORDER [None]
  - BLOOD GLUCOSE INCREASED [None]
